FAERS Safety Report 17676712 (Version 1)
Quarter: 2020Q2

REPORT INFORMATION
  Report Type: Spontaneous
  Country: US (occurrence: US)
  Receive Date: 20200416
  Receipt Date: 20200416
  Transmission Date: 20200714
  Serious: Yes (Other)
  Sender: FDA-Public Use
  Company Number: None

PATIENT
  Age: 24 Year
  Sex: Female
  Weight: 107.5 kg

DRUGS (2)
  1. LATUDA [Suspect]
     Active Substance: LURASIDONE HYDROCHLORIDE
     Route: 048
     Dates: start: 20190720
  2. DULOXETINE. [Concomitant]
     Active Substance: DULOXETINE
     Dates: start: 20191024

REACTIONS (1)
  - Tachycardia [None]

NARRATIVE: CASE EVENT DATE: 20200415
